FAERS Safety Report 8059213-2 (Version None)
Quarter: 2012Q1

REPORT INFORMATION
  Report Type: 
  Country: None (occurrence: None)
  Receive Date: 20120120
  Receipt Date: 20120110
  Transmission Date: 20120608
  Serious: Yes (Hospitalization)
  Sender: FDA-Public Use
  Company Number: TR-JNJFOC-20120102780

PATIENT
  Sex: Male

DRUGS (4)
  1. PALIPERIDONE [Suspect]
     Route: 030
     Dates: start: 20110926
  2. PALIPERIDONE [Concomitant]
     Route: 048
     Dates: start: 20111006, end: 20111028
  3. PALIPERIDONE [Suspect]
     Indication: SCHIZOPHRENIA
     Route: 030
     Dates: start: 20111209
  4. PALIPERIDONE [Concomitant]
     Indication: SCHIZOPHRENIA
     Route: 048
     Dates: start: 20110928, end: 20111006

REACTIONS (1)
  - SCHIZOPHRENIA [None]
